FAERS Safety Report 12412282 (Version 1)
Quarter: 2016Q2

REPORT INFORMATION
  Report Type: Spontaneous
  Country: US (occurrence: US)
  Receive Date: 20160527
  Receipt Date: 20160527
  Transmission Date: 20160815
  Serious: Yes (Hospitalization, Other)
  Sender: FDA-Public Use
  Company Number: US-ELI_LILLY_AND_COMPANY-US201507009156

PATIENT
  Sex: Male
  Weight: 97.51 kg

DRUGS (6)
  1. LETAIRIS [Concomitant]
     Active Substance: AMBRISENTAN
  2. ADCIRCA [Suspect]
     Active Substance: TADALAFIL
     Indication: PULMONARY HYPERTENSION
     Dosage: 40 MG, DAILY
     Route: 048
  3. BUMEX [Concomitant]
     Active Substance: BUMETANIDE
  4. METOLAZONE. [Concomitant]
     Active Substance: METOLAZONE
  5. POTASSIUM [Concomitant]
     Active Substance: POTASSIUM
  6. REMODULIN [Suspect]
     Active Substance: TREPROSTINIL
     Indication: PULMONARY ARTERIAL HYPERTENSION
     Dosage: 109 NG/KG/MIN, CONTINUOUS
     Route: 042
     Dates: start: 20150617

REACTIONS (5)
  - Fluid overload [Recovered/Resolved]
  - Device related infection [Recovered/Resolved]
  - Pulmonary hypertension [Recovered/Resolved]
  - Sepsis [Recovered/Resolved]
  - Cardiac failure acute [Recovered/Resolved]
